FAERS Safety Report 7571966-6 (Version None)
Quarter: 2011Q2

REPORT INFORMATION
  Report Type: 
  Country: None (occurrence: None)
  Receive Date: 20110624
  Receipt Date: 20110615
  Transmission Date: 20111010
  Serious: Yes (Other)
  Sender: FDA-Public Use
  Company Number: DE-UCBSA-035411

PATIENT
  Sex: Male

DRUGS (1)
  1. KEPPRA [Suspect]

REACTIONS (3)
  - MENTAL DISORDER DUE TO A GENERAL MEDICAL CONDITION [None]
  - BRADYPHRENIA [None]
  - COGNITIVE DISORDER [None]
